FAERS Safety Report 10167007 (Version 4)
Quarter: 2015Q3

REPORT INFORMATION
  Report Type: Spontaneous
  Country: US (occurrence: US)
  Receive Date: 20140512
  Receipt Date: 20150717
  Transmission Date: 20151125
  Serious: No
  Sender: FDA-Public Use
  Company Number: US-PFIZER INC-2014129661

PATIENT
  Age: 19 Year
  Sex: Female
  Weight: 66 kg

DRUGS (4)
  1. LORYNA [Concomitant]
     Active Substance: DROSPIRENONE\ETHINYL ESTRADIOL
     Indication: CONTRACEPTION
     Dosage: UNK, 1X/DAY
  2. ZOLOFT [Suspect]
     Active Substance: SERTRALINE HYDROCHLORIDE
     Indication: SOCIAL PHOBIA
     Dosage: 25 MG, 1X/DAY
     Route: 048
     Dates: start: 20140310, end: 201503
  3. ZOLOFT [Suspect]
     Active Substance: SERTRALINE HYDROCHLORIDE
     Indication: ANXIETY
     Dosage: 200 MG, 1X/DAY
     Route: 048
     Dates: start: 201503, end: 201503
  4. ZOLOFT [Suspect]
     Active Substance: SERTRALINE HYDROCHLORIDE
     Indication: DEPRESSION
     Dosage: DOSE REDUCED
     Route: 048
     Dates: start: 201503

REACTIONS (13)
  - Headache [Recovered/Resolved]
  - Hypomania [Recovered/Resolved]
  - Night sweats [Recovered/Resolved]
  - Insomnia [Recovered/Resolved]
  - Pruritus [Unknown]
  - Anxiety [Unknown]
  - Pain in jaw [Recovered/Resolved]
  - Acne [Unknown]
  - Skin reaction [Unknown]
  - Impulse-control disorder [Recovered/Resolved]
  - Muscle rigidity [Recovered/Resolved]
  - Depression [Unknown]
  - Condition aggravated [Unknown]

NARRATIVE: CASE EVENT DATE: 2014
